FAERS Safety Report 10455828 (Version 1)
Quarter: 2014Q3

REPORT INFORMATION
  Report Type: Spontaneous
  Country: US (occurrence: None)
  Receive Date: 20140915
  Receipt Date: 20140915
  Transmission Date: 20150326
  Serious: No
  Sender: FDA-Public Use
  Company Number: None

PATIENT

DRUGS (2)
  1. PREDPAC [Suspect]
     Active Substance: PREDNISOLONE
  2. PREVPAC [Suspect]
     Active Substance: AMOXICILLIN\CLARITHROMYCIN\LANSOPRAZOLE

REACTIONS (2)
  - Intercepted drug dispensing error [None]
  - Circumstance or information capable of leading to medication error [None]
